FAERS Safety Report 10255776 (Version 1)
Quarter: 2014Q2

REPORT INFORMATION
  Report Type: Spontaneous
  Country: US (occurrence: None)
  Receive Date: 20140522
  Receipt Date: 20140522
  Transmission Date: 20141212
  Serious: No
  Sender: FDA-Public Use
  Company Number: 1000054048

PATIENT
  Age: 74 Year
  Sex: Female

DRUGS (1)
  1. TUDORZA PRESSAIR (ACILIDINIUM BROMIDE) (400 MICROGRAM, POWDER) [Suspect]
     Indication: CHRONIC OBSTRUCTIVE PULMONARY DISEASE
     Dosage: 800 UG (400 UG, 2 IN 1)
     Route: 055
     Dates: start: 20140117, end: 20140130

REACTIONS (3)
  - Nausea [None]
  - Abdominal discomfort [None]
  - Dizziness [None]
